FAERS Safety Report 6317316-4 (Version None)
Quarter: 2009Q3

REPORT INFORMATION
  Report Type: 
  Country: None (occurrence: None)
  Receive Date: 20090821
  Receipt Date: 20090813
  Transmission Date: 20100115
  Serious: Yes (Hospitalization)
  Sender: FDA-Public Use
  Company Number: US-BIOGENIDEC-2006BI005291

PATIENT
  Age: 44 Year
  Sex: Male

DRUGS (2)
  1. AVONEX [Suspect]
     Indication: MULTIPLE SCLEROSIS
     Route: 030
     Dates: start: 19990830, end: 20051118
  2. AVONEX [Suspect]
     Route: 030
     Dates: start: 20060816

REACTIONS (3)
  - DECUBITUS ULCER [None]
  - LUNG INFECTION [None]
  - PROCEDURAL PAIN [None]
